FAERS Safety Report 5580419-6 (Version None)
Quarter: 2007Q4

REPORT INFORMATION
  Report Type: 
  Country: None (occurrence: None)
  Receive Date: 20071227
  Receipt Date: 20071212
  Transmission Date: 20080405
  Serious: Yes (Hospitalization)
  Sender: FDA-Public Use
  Company Number: 2007BI009263

PATIENT
  Age: 69 Year
  Sex: Male

DRUGS (1)
  1. AVONEX [Suspect]
     Indication: MULTIPLE SCLEROSIS
     Dosage: 30 UG; QW; IM
     Route: 030
     Dates: start: 20050506

REACTIONS (7)
  - CYSTITIS [None]
  - DECUBITUS ULCER [None]
  - DIALYSIS [None]
  - OPEN WOUND [None]
  - RENAL FAILURE [None]
  - SKIN LESION [None]
  - WOUND INFECTION [None]
